FAERS Safety Report 5308571-8 (Version None)
Quarter: 2007Q3

REPORT INFORMATION
  Report Type: 
  Country: None (occurrence: None)
  Receive Date: 20070420
  Receipt Date: 20070404
  Transmission Date: 20080115
  Serious: Yes (Death)
  Sender: FDA-Public Use
  Company Number: 8021888

PATIENT
  Age: 6 Year
  Sex: Male
  Weight: 25 kg

DRUGS (2)
  1. KEPPRA [Suspect]
     Indication: EPILEPSY
     Dosage: 4 ML 2/D PO
     Route: 048
     Dates: start: 20050101
  2. LUMINALETTEN [Suspect]
     Indication: EPILEPSY
     Dosage: 1.5 DF 2/D PO
     Route: 048
     Dates: start: 20020101

REACTIONS (1)
  - RESPIRATORY FAILURE [None]
